FAERS Safety Report 11802344 (Version 3)
Quarter: 2016Q1

REPORT INFORMATION
  Report Type: Spontaneous
  Country: IL (occurrence: IL)
  Receive Date: 20151204
  Receipt Date: 20160126
  Transmission Date: 20160525
  Serious: Yes (Hospitalization, Other)
  Sender: FDA-Public Use
  Company Number: IL-BAYER-2015-420937

PATIENT
  Age: 80 Year
  Sex: Male

DRUGS (2)
  1. XOFIGO [Suspect]
     Active Substance: RADIUM RA-223 DICHLORIDE
     Dosage: 50 KBQ/KG
     Route: 042
     Dates: start: 20150729, end: 20150729
  2. ERIVEDGE [Concomitant]
     Active Substance: VISMODEGIB
     Indication: BASAL CELL CARCINOMA

REACTIONS (5)
  - Lymphocyte count decreased [None]
  - Thrombocytopenia [None]
  - Neutrophil count decreased [None]
  - General physical health deterioration [Recovering/Resolving]
  - Brain abscess [None]
